FAERS Safety Report 4322429-2 (Version None)
Quarter: 2004Q1

REPORT INFORMATION
  Report Type: 
  Country: None (occurrence: None)
  Receive Date: 20040319
  Receipt Date: 20040309
  Transmission Date: 20041129
  Serious: Yes (Hospitalization)
  Sender: FDA-Public Use
  Company Number: 2004202908IT

PATIENT
  Sex: 0

DRUGS (8)
  1. FARMORUBICINA(EPIRUBICIN HYDROCHLORIDE) POWDER, STERILE [Suspect]
     Indication: BREAST CANCER
     Dosage: 75 MG/M2, D1, CYCLE 1, IV BOLUS
     Route: 040
  2. CISPLATIN [Suspect]
     Indication: BREAST CANCER
     Dosage: 50 MG/M2, D1, CYCLE 1, IV
     Route: 042
  3. VINORELBINE TARTRATE [Suspect]
     Indication: BREAST CANCER
     Dosage: 25 MG/M2, CYCLIC, IV BOLUS
     Route: 040
  4. I.V. SOLUTIONS [Concomitant]
  5. SEROTONIN ANTAGONISTS [Concomitant]
  6. DEXAMETHASONE [Concomitant]
  7. METOCLOPRAMIDE [Concomitant]
  8. FUROSEMIDE [Concomitant]

REACTIONS (2)
  - DRUG TOXICITY [None]
  - ILEUS PARALYTIC [None]
